FAERS Safety Report 5411363-2 (Version None)
Quarter: 2007Q3

REPORT INFORMATION
  Report Type: 
  Country: None (occurrence: None)
  Receive Date: 20070810
  Receipt Date: 20070731
  Transmission Date: 20080115
  Serious: Yes (Other)
  Sender: FDA-Public Use
  Company Number: DE-GILEAD-2007-0012437

PATIENT
  Sex: Male

DRUGS (6)
  1. TRUVADA [Suspect]
     Indication: HIV INFECTION
     Route: 048
     Dates: start: 20050630, end: 20070402
  2. VIRAMUNE [Concomitant]
     Indication: HIV INFECTION
     Route: 048
     Dates: start: 20050830, end: 20070402
  3. OMEPRAZOLE [Concomitant]
     Route: 048
     Dates: start: 20050927
  4. VERAMIL [Concomitant]
     Indication: HYPERTONIA
     Route: 048
     Dates: start: 20070105, end: 20070301
  5. LEXOSTRAD [Concomitant]
     Indication: PANIC ATTACK
     Route: 048
     Dates: start: 20070130, end: 20070301
  6. RAMIPRIL [Concomitant]
     Indication: HYPERTONIA
     Route: 048
     Dates: start: 20070307

REACTIONS (2)
  - DIABETES INSIPIDUS [None]
  - HYPERTENSION [None]
